FAERS Safety Report 14683325 (Version 6)
Quarter: 2019Q3

REPORT INFORMATION
  Report Type: Report from Study
  Country: None (occurrence: GB)
  Receive Date: 20180327
  Receipt Date: 20190802
  Transmission Date: 20191004
  Serious: Yes (Other)
  Sender: FDA-Public Use
  Company Number: GB-ABBVIE-18K-167-2301501-00

PATIENT
  Age: 72 Year
  Sex: Female

DRUGS (2)
  1. HUMIRA [Suspect]
     Active Substance: ADALIMUMAB
     Indication: ANKYLOSING SPONDYLITIS
     Route: 058
     Dates: end: 20180111
  2. HUMIRA [Suspect]
     Active Substance: ADALIMUMAB
     Route: 058
     Dates: start: 2019

REACTIONS (20)
  - Atrophy of globe [Unknown]
  - Pulmonary tuberculosis [Unknown]
  - Iridocyclitis [Not Recovered/Not Resolved]
  - Dry eye [Unknown]
  - Blindness unilateral [Not Recovered/Not Resolved]
  - Uveitis [Recovered/Resolved with Sequelae]
  - Intraocular pressure test abnormal [Recovering/Resolving]
  - Ulcerative keratitis [Unknown]
  - Endophthalmitis [Unknown]
  - Eye infection intraocular [Not Recovered/Not Resolved]
  - Emotional distress [Unknown]
  - Infective keratitis [Not Recovered/Not Resolved]
  - Photopsia [Unknown]
  - Corneal infection [Unknown]
  - Headache [Recovered/Resolved]
  - Keratitis [Recovered/Resolved with Sequelae]
  - Eyelid ptosis [Unknown]
  - Feeling hot [Unknown]
  - Hypotony of eye [Unknown]
  - Eye disorder [Unknown]

NARRATIVE: CASE EVENT DATE: 2018
